FAERS Safety Report 26031381 (Version 1)
Quarter: 2025Q4

REPORT INFORMATION
  Report Type: Spontaneous
  Country: EU (occurrence: EU)
  Receive Date: 20251112
  Receipt Date: 20251112
  Transmission Date: 20260118
  Serious: Yes (Other)
  Sender: AUROBINDO
  Company Number: EU-MINISAL02-1064859

PATIENT
  Age: 66 Year
  Sex: Female

DRUGS (4)
  1. OXALIPLATIN [Suspect]
     Active Substance: OXALIPLATIN
     Indication: Colon cancer
     Dosage: 110 MILLIGRAM
     Route: 042
     Dates: start: 20250314
  2. BEVACIZUMAB [Suspect]
     Active Substance: BEVACIZUMAB
     Indication: Colon cancer
     Dosage: 360 MILLIGRAM
     Route: 042
     Dates: start: 20250314, end: 20250314
  3. FLUOROURACIL [Suspect]
     Active Substance: FLUOROURACIL
     Indication: Colon cancer
     Dosage: 518 MILLIGRAM
     Route: 042
     Dates: start: 20250314, end: 20250314
  4. FLUOROURACIL [Suspect]
     Active Substance: FLUOROURACIL
     Dosage: 3108 MILLIGRAM
     Route: 042
     Dates: start: 20250314, end: 20250316

REACTIONS (1)
  - Azotaemia [Recovering/Resolving]

NARRATIVE: CASE EVENT DATE: 20250325
